FAERS Safety Report 8597111-6 (Version None)
Quarter: 2012Q3

REPORT INFORMATION
  Report Type: 
  Country: None (occurrence: None)
  Receive Date: 20120816
  Receipt Date: 20120808
  Transmission Date: 20120928
  Serious: No
  Sender: FDA-Public Use
  Company Number: US-BIOGENIDEC-2012BI028401

PATIENT
  Age: 61 Year
  Sex: Female

DRUGS (2)
  1. TYSABRI [Suspect]
     Indication: MULTIPLE SCLEROSIS
     Route: 042
     Dates: start: 20090504, end: 20120501
  2. TYSABRI [Suspect]
     Route: 042
     Dates: start: 20120712

REACTIONS (1)
  - MULTIPLE SCLEROSIS RELAPSE [None]
